FAERS Safety Report 7833522-1 (Version None)
Quarter: 2011Q4

REPORT INFORMATION
  Report Type: 
  Country: None (occurrence: None)
  Receive Date: 20111024
  Receipt Date: 20111011
  Transmission Date: 20120403
  Serious: Yes (Hospitalization, Disabling)
  Sender: FDA-Public Use
  Company Number: US-BAYER-2011-007244

PATIENT
  Age: 27 Year
  Sex: Female
  Weight: 79.365 kg

DRUGS (5)
  1. PAROXETINE HCL [Concomitant]
     Indication: ANXIETY
     Dosage: UNK
     Dates: start: 20090101
  2. SUBOXONE [Concomitant]
     Indication: DRUG DEPENDENCE
     Dosage: UNK
     Dates: start: 20090101
  3. YAZ [Suspect]
     Indication: PREMENSTRUAL SYNDROME
     Dosage: UNK
     Route: 048
     Dates: start: 20091127, end: 20091215
  4. MAXALT [Concomitant]
     Indication: MIGRAINE
     Dosage: UNK
     Dates: start: 20070101
  5. YAZ [Suspect]

REACTIONS (2)
  - PULMONARY EMBOLISM [None]
  - PAIN [None]
